FAERS Safety Report 4563014-7 (Version None)
Quarter: 2005Q1

REPORT INFORMATION
  Report Type: 
  Country: None (occurrence: None)
  Receive Date: 20050126
  Receipt Date: 20050121
  Transmission Date: 20050727
  Serious: Yes (Other)
  Sender: FDA-Public Use
  Company Number: 003974

PATIENT
  Age: 57 Year
  Sex: Female

DRUGS (3)
  1. MEDROXYPROGESTERONE ACETATE [Suspect]
     Dosage: ORAL
     Route: 048
     Dates: start: 19990401, end: 20000101
  2. PREMARIN [Suspect]
     Dosage: ORAL
     Route: 048
     Dates: start: 19990401, end: 20000101
  3. PREMPRO [Suspect]
     Dosage: ORAL
     Route: 048
     Dates: start: 20010501, end: 20011101

REACTIONS (1)
  - BREAST CANCER FEMALE [None]
